FAERS Safety Report 7994812-5 (Version None)
Quarter: 2011Q4

REPORT INFORMATION
  Report Type: 
  Country: None (occurrence: None)
  Receive Date: 20111220
  Receipt Date: 20111207
  Transmission Date: 20120403
  Serious: Yes (Hospitalization)
  Sender: FDA-Public Use
  Company Number: FR-ROCHE-1017429

PATIENT
  Age: 20 Year
  Sex: Female

DRUGS (6)
  1. LEVOTHYROXINE SODIUM [Concomitant]
  2. CLIMASTON [Concomitant]
  3. METFORMIN HCL [Concomitant]
  4. HYDROCORTISONE [Concomitant]
  5. DESMOPRESSIN ACETATE [Concomitant]
  6. SOMATROPIN [Suspect]
     Indication: GROWTH HORMONE DEFICIENCY
     Dosage: 10 MG/2 ML
     Route: 058
     Dates: start: 20080821

REACTIONS (1)
  - ACUTE TONSILLITIS [None]
